FAERS Safety Report 9850046 (Version 2)
Quarter: 2014Q1

REPORT INFORMATION
  Report Type: Other
  Country: US (occurrence: US)
  Receive Date: 20140128
  Receipt Date: 20140128
  Transmission Date: 20141002
  Serious: Yes (Other)
  Sender: FDA-Public Use
  Company Number: US-ACORDA-ACO_37992_2013

PATIENT
  Age: 74 Year
  Sex: Female

DRUGS (6)
  1. AMPYRA [Suspect]
     Indication: MULTIPLE SCLEROSIS
     Dosage: 10 MG, BID
     Route: 065
     Dates: start: 20130321, end: 20130322
  2. ZOLOFT [Concomitant]
     Indication: DEPRESSION
     Dosage: 100 MG, QD
     Route: 048
  3. SYNTHROID [Concomitant]
     Indication: HYPOTHYROIDISM
     Dosage: 88 MCG, QD
     Route: 048
  4. SYNTHROID [Concomitant]
     Dosage: 88 MCG UNK
     Route: 048
  5. TOVIAZ [Concomitant]
     Indication: POLLAKIURIA
     Dosage: 4 MG, QD
     Route: 048
  6. TRICOR [Concomitant]
     Indication: BLOOD CHOLESTEROL INCREASED
     Dosage: 145 MG, QD
     Route: 048

REACTIONS (4)
  - Altered state of consciousness [Recovered/Resolved]
  - Aphasia [Recovered/Resolved]
  - Staring [Recovered/Resolved]
  - Memory impairment [Recovered/Resolved]
